FAERS Safety Report 17916370 (Version 1)
Quarter: 2020Q2

REPORT INFORMATION
  Report Type: Spontaneous
  Country: ES (occurrence: ES)
  Receive Date: 20200619
  Receipt Date: 20200619
  Transmission Date: 20200714
  Serious: Yes (Hospitalization)
  Sender: FDA-Public Use
  Company Number: ES-009507513-2006ESP006062

PATIENT
  Age: 70 Year
  Sex: Female

DRUGS (4)
  1. ALENDRONATE SODIUM. [Suspect]
     Active Substance: ALENDRONATE SODIUM
     Indication: OSTEOPOROSIS
     Dosage: 70 MILLIGRAM, QW
     Route: 048
     Dates: start: 20110311, end: 20200531
  2. ETORICOXIB. [Concomitant]
     Active Substance: ETORICOXIB
     Dosage: UNK
  3. DISNAL [Concomitant]
     Dosage: UNK, 60 TABLETS
  4. OMEPRAZOLE. [Concomitant]
     Active Substance: OMEPRAZOLE
     Dosage: UNK

REACTIONS (2)
  - Failure to suspend medication [Recovering/Resolving]
  - Atypical femur fracture [Recovering/Resolving]

NARRATIVE: CASE EVENT DATE: 20200531
